FAERS Safety Report 24700898 (Version 1)
Quarter: 2024Q4

REPORT INFORMATION
  Report Type: Report from Study
  Country: US (occurrence: US)
  Receive Date: 20241205
  Receipt Date: 20241205
  Transmission Date: 20250114
  Serious: Yes (Other)
  Sender: EXELIXIS
  Company Number: US-EXELIXIS-EXL-2024-001349

PATIENT
  Age: 79 Year
  Sex: Male
  Weight: 114.74 kg

DRUGS (1)
  1. CABOMETYX [Suspect]
     Active Substance: CABOZANTINIB S-MALATE
     Indication: Renal cancer
     Dosage: 40 MG, QD
     Route: 048
     Dates: start: 20240913

REACTIONS (12)
  - Atrial fibrillation [Unknown]
  - Rib fracture [Unknown]
  - Fall [Unknown]
  - Unevaluable event [Unknown]
  - Diarrhoea [Unknown]
  - Abdominal discomfort [Unknown]
  - Fatigue [Unknown]
  - Taste disorder [Unknown]
  - Platelet count decreased [Unknown]
  - Scar [Unknown]
  - Laziness [Unknown]
  - Pain [Unknown]

NARRATIVE: CASE EVENT DATE: 20241101
